FAERS Safety Report 6293733-6 (Version None)
Quarter: 2009Q3

REPORT INFORMATION
  Report Type: 
  Country: None (occurrence: None)
  Receive Date: 20090729
  Receipt Date: 20090722
  Transmission Date: 20100115
  Serious: Yes (Death)
  Sender: FDA-Public Use
  Company Number: CQT2-2008-00042

PATIENT
  Age: 80 Year
  Sex: Male

DRUGS (3)
  1. ANAGRELIDE HCL [Suspect]
     Indication: ESSENTIAL THROMBOCYTHAEMIA
     Dosage: 1 MG, AS REQ'D, ORAL; 1 MG DAILY FOR TWO DAYS, THEN 1.5 MG FOR ONE DAY, REPEATING, ORAL
     Route: 048
     Dates: start: 20050527
  2. ANAGRELIDE HCL [Suspect]
     Indication: ESSENTIAL THROMBOCYTHAEMIA
     Dosage: 1 MG, AS REQ'D, ORAL; 1 MG DAILY FOR TWO DAYS, THEN 1.5 MG FOR ONE DAY, REPEATING, ORAL
     Route: 048
     Dates: start: 20061122
  3. NOVODIGAL /00017701/ (DIGOXIN) UNKNOWN [Concomitant]

REACTIONS (2)
  - ANAEMIA [None]
  - CARDIAC FAILURE [None]
